FAERS Safety Report 10075732 (Version 2)
Quarter: 2014Q2

REPORT INFORMATION
  Report Type: Spontaneous
  Country: FR (occurrence: FR)
  Receive Date: 20140414
  Receipt Date: 20140428
  Transmission Date: 20141212
  Serious: Yes (Hospitalization)
  Sender: FDA-Public Use
  Company Number: FR-ROCHE-1378432

PATIENT
  Age: 47 Year
  Sex: Male
  Weight: 56 kg

DRUGS (10)
  1. MIRCERA [Suspect]
     Indication: ANAEMIA
     Route: 042
     Dates: start: 20140218, end: 20140319
  2. NEORECORMON [Concomitant]
     Route: 065
  3. APROVEL [Concomitant]
     Route: 065
  4. BISOCE [Concomitant]
     Route: 065
  5. INEXIUM [Concomitant]
     Route: 065
  6. KARDEGIC [Concomitant]
     Route: 065
  7. KAYEXALATE [Concomitant]
     Route: 065
  8. LASILIX SPECIAL [Concomitant]
     Route: 065
  9. MIMPARA [Concomitant]
     Route: 065
  10. CALCIPARINE [Concomitant]
     Route: 058

REACTIONS (2)
  - Anaemia [Recovered/Resolved]
  - Acute coronary syndrome [Recovered/Resolved]
